FAERS Safety Report 6106190-7 (Version None)
Quarter: 2009Q1

REPORT INFORMATION
  Report Type: 
  Country: None (occurrence: None)
  Receive Date: 20090304
  Receipt Date: 20090225
  Transmission Date: 20090719
  Serious: Yes (Disabling)
  Sender: FDA-Public Use
  Company Number: 2008S1005673

PATIENT
  Age: 75 Year
  Sex: Male
  Weight: 107.0489 kg

DRUGS (13)
  1. LISINOPRIL [Suspect]
     Indication: HYPERTENSION
     Dosage: 10 MG;DAILY;ORAL
     Route: 048
     Dates: start: 20060106, end: 20060406
  2. SILVADENE [Suspect]
     Dosage: TOPICAL
     Route: 061
  3. METOPROLOL (CON.) [Concomitant]
  4. HYDROCHLOROTHIAZIDE W/TRIAMTERENE (CON.) [Concomitant]
  5. WARFARIN (CON.) [Concomitant]
  6. POTASSIUM CHLORIDE (CON.) [Concomitant]
  7. NORVASC /00972402/ (CON.) [Concomitant]
  8. EUCERIN /00021201/ (CON.) [Concomitant]
  9. SULAR (CON.) [Concomitant]
  10. AVAPRO (CON.) [Concomitant]
  11. ENALAPRIL (CON.) [Concomitant]
  12. DIGOXIN (CON.) [Concomitant]
  13. TRIAMTERINE [Concomitant]

REACTIONS (9)
  - BLOODY DISCHARGE [None]
  - DERMATITIS [None]
  - LYMPHOEDEMA [None]
  - PHOTOSENSITIVITY REACTION [None]
  - PIGMENTATION DISORDER [None]
  - RASH GENERALISED [None]
  - REACTION TO DRUG EXCIPIENTS [None]
  - SKIN ULCER [None]
  - TREATMENT FAILURE [None]
